FAERS Safety Report 20801204 (Version 1)
Quarter: 2022Q2

REPORT INFORMATION
  Report Type: Spontaneous
  Country: PR (occurrence: None)
  Receive Date: 20220506
  Receipt Date: 20220506
  Transmission Date: 20220721
  Serious: No
  Sender: FDA-Public Use
  Company Number: None

PATIENT
  Age: 63 Year

DRUGS (1)
  1. HUMIRA [Suspect]
     Active Substance: ADALIMUMAB
     Dosage: OTHER FREQUENCY : CADA DOS SEMANAS;?
     Route: 058

REACTIONS (2)
  - Haemoglobin decreased [None]
  - Therapy cessation [None]

NARRATIVE: CASE EVENT DATE: 20220506
